FAERS Safety Report 8363414-3 (Version None)
Quarter: 2012Q2

REPORT INFORMATION
  Report Type: 
  Country: None (occurrence: None)
  Receive Date: 20120516
  Receipt Date: 20120117
  Transmission Date: 20120825
  Serious: Yes (Hospitalization)
  Sender: FDA-Public Use
  Company Number: US-ALEXION PHARMACEUTICALS INC.-A201101775

PATIENT
  Sex: Male

DRUGS (5)
  1. COUMADIN [Concomitant]
     Dosage: 12.5 MG, 2 DAYS A WEEK
  2. COUMADIN [Concomitant]
     Dosage: 60 MG,
     Route: 048
  3. SOLIRIS [Suspect]
     Indication: PAROXYSMAL NOCTURNAL HAEMOGLOBINURIA
     Dosage: UNK, Q2W
     Route: 042
  4. FOLIC ACID [Concomitant]
     Dosage: 1 MG, QD
     Route: 048
  5. COUMADIN [Concomitant]
     Dosage: 15 MG, 5 DAYS A WEEK

REACTIONS (4)
  - NERVE COMPRESSION [None]
  - HAEMOLYTIC ANAEMIA [None]
  - CONDITION AGGRAVATED [None]
  - MALAISE [None]
